FAERS Safety Report 7958926-8 (Version None)
Quarter: 2011Q4

REPORT INFORMATION
  Report Type: 
  Country: None (occurrence: None)
  Receive Date: 20111206
  Receipt Date: 20111123
  Transmission Date: 20120403
  Serious: Yes (Hospitalization)
  Sender: FDA-Public Use
  Company Number: US-ELI_LILLY_AND_COMPANY-US201109005394

PATIENT
  Sex: Female
  Weight: 58.957 kg

DRUGS (14)
  1. NIACIN [Concomitant]
     Dosage: 400 MG, QD
  2. SYNTHROID [Concomitant]
     Dosage: 125 MG, QD
  3. VITAMIN D [Concomitant]
     Dosage: 1000 IU, QD
  4. CITRACAL + D [Concomitant]
     Dosage: 630 MG, BID
  5. PRED FORTE [Concomitant]
     Dosage: 1 GTT, QD
     Route: 048
  6. AMLODIPINE [Concomitant]
     Dosage: 10 MG, QD
  7. NORCO [Concomitant]
     Dosage: 325 MG, PRN
  8. PROPRANOLOL [Concomitant]
     Dosage: 10 MG, BID
  9. ACETAMINOPHEN [Concomitant]
     Dosage: 650 MG, EVERY 4 HRS
  10. COUMADIN [Concomitant]
     Dosage: 1 MG, 5/W
  11. COLACE [Concomitant]
     Dosage: 100 MG, BID
  12. RANITIDINE [Concomitant]
     Dosage: 300 MG, UNK
  13. COUMADIN [Concomitant]
     Dosage: 2 MG, 2/W
  14. FORTEO [Suspect]
     Dosage: 20 UG, QD
     Route: 058
     Dates: start: 20090923, end: 20110801

REACTIONS (2)
  - OSTEOARTHRITIS [None]
  - DRUG DOSE OMISSION [None]
